FAERS Safety Report 17563545 (Version 2)
Quarter: 2020Q2

REPORT INFORMATION
  Report Type: Report from Study
  Country: US (occurrence: US)
  Receive Date: 20200319
  Receipt Date: 20200403
  Transmission Date: 20200713
  Serious: Yes (Hospitalization, Other)
  Sender: FDA-Public Use
  Company Number: US-AGIOS-2003US01736

PATIENT

DRUGS (2)
  1. VENCLEXTA [Concomitant]
     Active Substance: VENETOCLAX
     Indication: ACUTE MYELOID LEUKAEMIA
     Dosage: 100 MILLIGRAM, QD
     Dates: start: 20200306
  2. TIBSOVO [Suspect]
     Active Substance: IVOSIDENIB
     Indication: ACUTE MYELOID LEUKAEMIA
     Dosage: 250 MILLIGRAM, 2 TABLETS (500 MG), QD
     Route: 048
     Dates: start: 20190808, end: 20200306

REACTIONS (20)
  - Diarrhoea [Unknown]
  - Pyrexia [Unknown]
  - Sepsis [Unknown]
  - Acute respiratory failure [Unknown]
  - Cough [Unknown]
  - Malnutrition [Unknown]
  - Acute respiratory distress syndrome [Unknown]
  - Blood triglycerides increased [Unknown]
  - Asthenia [Unknown]
  - Graft versus host disease [Unknown]
  - Cytomegalovirus viraemia [Unknown]
  - Heart rate increased [Unknown]
  - White blood cell count decreased [Unknown]
  - Upper respiratory tract infection [Unknown]
  - Pneumonia mycoplasmal [Unknown]
  - Acute myeloid leukaemia [Unknown]
  - Haemoglobin decreased [Unknown]
  - Febrile neutropenia [Unknown]
  - Serum ferritin increased [Unknown]
  - Platelet count decreased [Unknown]
